FAERS Safety Report 17562041 (Version 2)
Quarter: 2020Q1

REPORT INFORMATION
  Report Type: Spontaneous
  Country: US (occurrence: US)
  Receive Date: 20200319
  Receipt Date: 20200323
  Transmission Date: 20200409
  Serious: Yes (Hospitalization, Other)
  Sender: FDA-Public Use
  Company Number: US-PFIZER INC-2020118870

PATIENT
  Age: 45 Year
  Sex: Female
  Weight: 70.31 kg

DRUGS (5)
  1. GABAPENTIN. [Suspect]
     Active Substance: GABAPENTIN
     Indication: ANXIETY
  2. XIFAXAN [Concomitant]
     Active Substance: RIFAXIMIN
     Indication: LIVER DISORDER
     Dosage: 550 MG, 2X/DAY
  3. CYMBALTA [Concomitant]
     Active Substance: DULOXETINE HYDROCHLORIDE
     Indication: DEPRESSION
     Dosage: 60 MG, 1X/DAY
  4. GABAPENTIN. [Suspect]
     Active Substance: GABAPENTIN
     Indication: DEPRESSION
     Dosage: 300 MG (HALF TABLET), 3 TIMES DAILY
     Route: 048
     Dates: start: 2020, end: 20200302
  5. LACTULOSE. [Concomitant]
     Active Substance: LACTULOSE
     Indication: LIVER DISORDER
     Dosage: 30 MG, 2X/DAY

REACTIONS (9)
  - Contusion [Unknown]
  - Suicidal ideation [Unknown]
  - Aggression [Unknown]
  - Abdominal pain upper [Unknown]
  - Off label use [Unknown]
  - Withdrawal syndrome [Unknown]
  - Product use in unapproved indication [Unknown]
  - Intentional self-injury [Unknown]
  - Ammonia increased [Unknown]

NARRATIVE: CASE EVENT DATE: 2020
